FAERS Safety Report 5877543-7 (Version None)
Quarter: 2008Q3

REPORT INFORMATION
  Report Type: 
  Country: None (occurrence: None)
  Receive Date: 20080911
  Receipt Date: 20080829
  Transmission Date: 20090109
  Serious: Yes (Other)
  Sender: FDA-Public Use
  Company Number: PHHY2008JP18677

PATIENT
  Age: 1 Year
  Sex: Female

DRUGS (4)
  1. NEORAL [Suspect]
     Indication: HISTIOCYTOSIS HAEMATOPHAGIC
  2. ETOPOSIDE [Suspect]
  3. PREDNISOLONE [Suspect]
     Indication: HISTIOCYTOSIS HAEMATOPHAGIC
  4. DEXAMETHASONE [Suspect]
     Indication: HISTIOCYTOSIS HAEMATOPHAGIC

REACTIONS (5)
  - BACTERIAL INFECTION [None]
  - BONE MARROW FAILURE [None]
  - BRONCHOPULMONARY ASPERGILLOSIS [None]
  - DISEASE RECURRENCE [None]
  - JAUNDICE [None]
